FAERS Safety Report 9461206 (Version 1)
Quarter: 2013Q3

REPORT INFORMATION
  Report Type: Spontaneous
  Country: US (occurrence: None)
  Receive Date: 20130814
  Receipt Date: 20130814
  Transmission Date: 20140515
  Serious: Yes (Other)
  Sender: FDA-Public Use
  Company Number: None

PATIENT
  Age: 68 Year
  Sex: Female
  Weight: 74.84 kg

DRUGS (5)
  1. SUCCINYLCHOLINE [Suspect]
     Indication: SURGERY
     Route: 042
     Dates: start: 20130322, end: 20130322
  2. LAMOTRIGINE [Concomitant]
  3. NAPROXEN [Concomitant]
  4. SEROQUEL [Concomitant]
  5. CENTRUM SILVER VITAMINS [Concomitant]

REACTIONS (5)
  - Pruritus [None]
  - Myalgia [None]
  - Stress [None]
  - Unevaluable event [None]
  - Movement disorder [None]
